FAERS Safety Report 9094578 (Version 1)
Quarter: 2013Q1

REPORT INFORMATION
  Report Type: Spontaneous
  Country: DE (occurrence: DE)
  Receive Date: 20130220
  Receipt Date: 20130220
  Transmission Date: 20140127
  Serious: Yes (Hospitalization)
  Sender: FDA-Public Use
  Company Number: DE-AMGEN-DEUSP2013010901

PATIENT
  Age: 79 Year
  Sex: Female

DRUGS (2)
  1. ENBREL [Suspect]
     Indication: RHEUMATOID ARTHRITIS
     Dosage: 50 MG, WEEKLY
     Dates: start: 20040106
  2. ENBREL [Suspect]
     Indication: POLYARTHRITIS
     Dosage: UNK

REACTIONS (2)
  - Cardiac disorder [Recovered/Resolved]
  - Renal disorder [Recovered/Resolved]
